FAERS Safety Report 9038763 (Version 1)
Quarter: 2013Q1

REPORT INFORMATION
  Report Type: Spontaneous
  Country: US (occurrence: None)
  Receive Date: 20130123
  Receipt Date: 20130123
  Transmission Date: 20140127
  Serious: Yes (Other)
  Sender: FDA-Public Use
  Company Number: None

PATIENT
  Age: 50 Year
  Sex: Female
  Weight: 103.42 kg

DRUGS (1)
  1. COLCRYS COLCHICINE [Suspect]

REACTIONS (3)
  - Abdominal pain upper [None]
  - Pain [None]
  - Asthenia [None]
